FAERS Safety Report 4811363-7 (Version None)
Quarter: 2005Q4

REPORT INFORMATION
  Report Type: 
  Country: None (occurrence: None)
  Receive Date: 20051026
  Receipt Date: 20051026
  Transmission Date: 20060501
  Serious: No
  Sender: FDA-Public Use
  Company Number: None

PATIENT
  Age: 34 Year
  Sex: Male
  Weight: 108.8633 kg

DRUGS (2)
  1. TRUVADA [Suspect]
     Indication: HIV INFECTION
     Dosage: ONE PILL ONE TIME DAILY PO
     Route: 048
     Dates: start: 20041118, end: 20051025
  2. SUSTIVA [Concomitant]

REACTIONS (2)
  - MALAISE [None]
  - VIRAL LOAD INCREASED [None]
